FAERS Safety Report 14365894 (Version 1)
Quarter: 2018Q1

REPORT INFORMATION
  Report Type: Spontaneous
  Country: FR (occurrence: FR)
  Receive Date: 20180109
  Receipt Date: 20180109
  Transmission Date: 20180509
  Serious: Yes (Other)
  Sender: FDA-Public Use
  Company Number: FR-MERCK KGAA-2039676

PATIENT
  Age: 60 Year
  Sex: Female
  Weight: 50 kg

DRUGS (2)
  1. NOVOTHYROX [Suspect]
     Active Substance: LEVOTHYROXINE SODIUM
     Indication: THYROIDECTOMY
     Route: 048
     Dates: start: 20170426, end: 20171107
  2. NOVOTHYROX [Suspect]
     Active Substance: LEVOTHYROXINE SODIUM
     Route: 048
     Dates: end: 20170711

REACTIONS (15)
  - Alopecia [Recovering/Resolving]
  - Weight decreased [Recovering/Resolving]
  - Muscle spasms [Not Recovered/Not Resolved]
  - Haematoma [Recovering/Resolving]
  - Hepatic pain [Recovering/Resolving]
  - Myalgia [Not Recovered/Not Resolved]
  - Insomnia [Recovering/Resolving]
  - Vertigo [Recovering/Resolving]
  - Nervousness [Recovering/Resolving]
  - Fatigue [Not Recovered/Not Resolved]
  - Swollen tongue [Recovering/Resolving]
  - Dyspepsia [Recovering/Resolving]
  - Headache [Recovering/Resolving]
  - Tachycardia [Recovering/Resolving]
  - Blood thyroid stimulating hormone [Unknown]

NARRATIVE: CASE EVENT DATE: 201705
